FAERS Safety Report 7469192-4 (Version None)
Quarter: 2011Q2

REPORT INFORMATION
  Report Type: 
  Country: None (occurrence: None)
  Receive Date: 20110510
  Receipt Date: 20110412
  Transmission Date: 20111010
  Serious: Yes (Hospitalization)
  Sender: FDA-Public Use
  Company Number: US-BAYER-201033634NA

PATIENT
  Age: 40 Year
  Sex: Female
  Weight: 74.83 kg

DRUGS (12)
  1. TOPROL-XL [Concomitant]
     Dosage: UNK
     Dates: start: 20070422
  2. ZANTAC 3 [Concomitant]
  3. YAZ [Suspect]
     Indication: PRODUCT USED FOR UNKNOWN INDICATION
     Route: 065
     Dates: start: 20060601
  4. YASMIN [Suspect]
     Indication: PRODUCT USED FOR UNKNOWN INDICATION
     Route: 065
     Dates: start: 20060601
  5. METHIMAZOLE [Concomitant]
     Dosage: UNK
     Dates: start: 20070422
  6. VICODIN [Concomitant]
     Dosage: UNK
     Dates: start: 20070422
  7. DROSPIRENONE AND ETHINYL ESTRADIOL [Suspect]
     Indication: PRODUCT USED FOR UNKNOWN INDICATION
     Route: 065
     Dates: start: 20060601
  8. NSAIDS [Concomitant]
  9. ADVIL LIQUI-GELS [Concomitant]
  10. PHENERGAN HCL [Concomitant]
     Dosage: UNK
     Dates: start: 20070422
  11. ACETAMINOPHEN [Concomitant]
  12. WARFAIN [Concomitant]
     Dosage: UNK
     Dates: start: 20070422

REACTIONS (1)
  - PULMONARY EMBOLISM [None]
